FAERS Safety Report 7353702-1 (Version None)
Quarter: 2011Q1

REPORT INFORMATION
  Report Type: 
  Country: None (occurrence: None)
  Receive Date: 20110315
  Receipt Date: 20090403
  Transmission Date: 20110831
  Serious: Yes (Hospitalization, Other)
  Sender: FDA-Public Use
  Company Number: US-BAYER-200922752NA

PATIENT
  Sex: Male
  Weight: 88.435 kg

DRUGS (38)
  1. DILAUDID [Concomitant]
     Dosage: 2 MG, UNK
     Route: 042
     Dates: start: 20050106, end: 20050106
  2. NEOMYCIN [Concomitant]
  3. METAMUCIL-2 [Concomitant]
     Route: 048
  4. LACTATED RINGER'S [Concomitant]
     Dosage: 1600 ML, UNK
     Route: 042
     Dates: start: 20050106
  5. TRASYLOL [Suspect]
     Indication: CORONARY ARTERY BYPASS
     Dosage: 36 ML, PER HOUR
     Dates: start: 20050106, end: 20050106
  6. LESCOL XL [Concomitant]
     Dosage: 40 MG, QD
     Route: 048
  7. XANAX [Concomitant]
     Indication: ANXIETY
     Route: 048
  8. CALCIUM CHLORIDE [Concomitant]
     Dosage: 1 G, UNK
     Route: 042
     Dates: start: 20050106, end: 20050106
  9. PHENYLEPHRINE [Concomitant]
     Dosage: UNK
     Route: 042
     Dates: start: 20050106, end: 20050106
  10. ALBUMIN (HUMAN) [Concomitant]
     Dosage: 5%, 500 ML, UNK
     Route: 042
     Dates: start: 20050106, end: 20050106
  11. TRASYLOL [Suspect]
     Indication: AORTIC VALVE REPLACEMENT
     Dosage: 200 ML, UNK
     Route: 042
     Dates: start: 20050106, end: 20050106
  12. MULTI-VITAMIN [Concomitant]
     Route: 048
  13. FLOMAX [Concomitant]
     Route: 048
  14. ZINACEF [Concomitant]
     Dosage: 1.5 G, UNK
     Route: 042
     Dates: start: 20050106, end: 20050106
  15. CONTRAST MEDIA [Concomitant]
     Indication: CATHETERISATION CARDIAC
     Dosage: UNK
     Dates: start: 20050103
  16. CELEBREX [Concomitant]
     Dosage: 200 MG, QD
     Route: 048
  17. LIDOCAINE [Concomitant]
     Dosage: 100 MG, UNK
     Route: 042
     Dates: start: 20050106, end: 20050106
  18. CEFUROXIME [Concomitant]
     Dosage: 1.5 G, UNK
     Route: 042
     Dates: start: 20050106, end: 20050106
  19. EPINEPHRINE [Concomitant]
     Dosage: UNK
     Route: 042
     Dates: start: 20050106, end: 20050106
  20. GENTAMICIN [Concomitant]
     Dosage: 160 MG, UNK
     Route: 042
     Dates: start: 20050106, end: 20050106
  21. VANCOMYCIN [Concomitant]
     Dosage: 5 G, UNK
     Route: 042
     Dates: start: 20050106
  22. ISOVUE-128 [Concomitant]
     Indication: CATHETERISATION CARDIAC
     Dosage: 80 ML, UNK
     Dates: start: 20040101
  23. ASPIRIN [Concomitant]
     Dosage: 81 MG, QD
     Route: 048
  24. ALBUMIN (HUMAN) [Concomitant]
     Dosage: 25 G, UNK
     Route: 042
     Dates: start: 20050106, end: 20050106
  25. LIDOCAINE [Concomitant]
     Dosage: 100 MG, UNK
     Route: 042
     Dates: start: 20050106, end: 20050106
  26. MAGNESIUM SULFATE [Concomitant]
     Dosage: 2 G, UNK
     Route: 042
  27. CALCIUM [Concomitant]
     Route: 048
  28. HEPARIN [Concomitant]
     Dosage: 10000 U, UNK
     Route: 042
     Dates: start: 20050106, end: 20050106
  29. PROTAMINE SULFATE [Concomitant]
     Dosage: 200 MG, UNK
     Route: 042
     Dates: start: 20050106, end: 20050106
  30. POTASSIUM CHLORIDE [Concomitant]
     Dosage: 40 MEQ, UNK
     Route: 042
     Dates: start: 20050106, end: 20050106
  31. EPHEDRINE [Concomitant]
     Dosage: UNK
     Route: 042
     Dates: start: 20050106, end: 20050106
  32. VASOPRESSIN [Concomitant]
     Dosage: UNK
     Route: 042
     Dates: start: 20050106, end: 20050106
  33. NORMAL SALINE [Concomitant]
     Dosage: 800 ML, UNK
     Route: 042
     Dates: start: 20050106
  34. SODIUM BICARBONATE [Concomitant]
     Dosage: 50 MEQ, UNK
     Route: 042
     Dates: start: 20050106, end: 20050106
  35. SAW PALMETTO [Concomitant]
     Dosage: 2 U, QD
     Route: 048
  36. MANNITOL [Concomitant]
     Dosage: 12.5 G, BID
     Route: 042
     Dates: start: 20050106, end: 20050106
  37. PROTAMINE SULFATE [Concomitant]
     Dosage: 200 MG, UNK
     Route: 042
     Dates: start: 20050106, end: 20050106
  38. POTASSIUM CHLORIDE [Concomitant]
     Dosage: 20 MEQ, UNK
     Route: 042
     Dates: start: 20050106, end: 20050106

REACTIONS (13)
  - RENAL FAILURE [None]
  - FEAR [None]
  - DISABILITY [None]
  - MENTAL DISORDER [None]
  - PAIN [None]
  - EMOTIONAL DISORDER [None]
  - RENAL INJURY [None]
  - ANXIETY [None]
  - EMOTIONAL DISTRESS [None]
  - MULTI-ORGAN FAILURE [None]
  - RENAL IMPAIRMENT [None]
  - UNEVALUABLE EVENT [None]
  - INJURY [None]
